FAERS Safety Report 4336720-7 (Version None)
Quarter: 2004Q2

REPORT INFORMATION
  Report Type: 
  Country: None (occurrence: None)
  Receive Date: 20040408
  Receipt Date: 20040326
  Transmission Date: 20050107
  Serious: Yes (Death, Other)
  Sender: FDA-Public Use
  Company Number: 2004021250

PATIENT
  Sex: Male

DRUGS (1)
  1. ZOLOFT [Suspect]
     Indication: DEPRESSION
     Dosage: 200 MG
     Dates: start: 20020101

REACTIONS (5)
  - COMPLETED SUICIDE [None]
  - CRYING [None]
  - IRRITABILITY [None]
  - PERSONALITY CHANGE [None]
  - RESTLESSNESS [None]
